FAERS Safety Report 11596897 (Version 1)
Quarter: 2015Q4

REPORT INFORMATION
  Report Type: Spontaneous
  Country: US (occurrence: None)
  Receive Date: 20151005
  Receipt Date: 20151005
  Transmission Date: 20160304
  Serious: No
  Sender: FDA-Public Use
  Company Number: None

PATIENT
  Age: 21 Year
  Sex: Female
  Weight: 52.16 kg

DRUGS (1)
  1. NEXPLANON [Suspect]
     Active Substance: ETONOGESTREL
     Dates: start: 20151002, end: 20151002

REACTIONS (8)
  - Feeling abnormal [None]
  - Nerve compression [None]
  - Sensory disturbance [None]
  - Peripheral nerve paresis [None]
  - Pain [None]
  - Nervousness [None]
  - Implant site swelling [None]
  - Implant site inflammation [None]

NARRATIVE: CASE EVENT DATE: 20151002
